FAERS Safety Report 8921412 (Version 2)
Quarter: 2013Q1

REPORT INFORMATION
  Report Type: Spontaneous
  Country: JP (occurrence: JP)
  Receive Date: 20121122
  Receipt Date: 20130322
  Transmission Date: 20140127
  Serious: Yes (Hospitalization)
  Sender: FDA-Public Use
  Company Number: JP-AMGEN-JPNSP2012074712

PATIENT
  Age: 67 Year
  Sex: Female

DRUGS (5)
  1. VECTIBIX [Suspect]
     Indication: RECTAL CANCER
     Dosage: UNK UNK, Q2WK
     Route: 041
  2. IRINOTECAN HYDROCHLORIDE [Concomitant]
     Indication: RECTAL CANCER
     Dosage: UNK UNK, Q2WK
     Route: 041
  3. FLUOROURACIL [Concomitant]
     Indication: RECTAL CANCER
     Dosage: UNK UNK, Q2WK
     Route: 042
  4. CALCIUM LEVOFOLINATE [Concomitant]
     Indication: RECTAL CANCER
     Dosage: UNK UNK, Q2WK
     Route: 041
  5. BEVACIZUMAB [Concomitant]
     Dosage: UNK

REACTIONS (1)
  - Skin ulcer [Recovering/Resolving]
